FAERS Safety Report 7980631-2 (Version None)
Quarter: 2011Q4

REPORT INFORMATION
  Report Type: 
  Country: None (occurrence: None)
  Receive Date: 20111214
  Receipt Date: 20111213
  Transmission Date: 20120403
  Serious: Yes (Other)
  Sender: FDA-Public Use
  Company Number: US-PFIZER INC-2011297021

PATIENT
  Sex: Female
  Weight: 74.83 kg

DRUGS (5)
  1. DILANTIN-125 [Suspect]
     Indication: CONVULSION
     Dosage: UNK
  2. PROTONIX [Concomitant]
     Dosage: 30 MG, UNK
  3. NORCO [Concomitant]
     Indication: PAIN
     Dosage: UNK
     Route: 048
  4. DILANTIN-125 [Suspect]
     Dosage: 400 MG, DAILY
  5. FUROSEMIDE [Concomitant]
     Indication: DIURETIC THERAPY
     Dosage: 80 MG, UNK

REACTIONS (1)
  - GASTROINTESTINAL STROMAL TUMOUR [None]
